FAERS Safety Report 10671905 (Version 1)
Quarter: 2014Q4

REPORT INFORMATION
  Report Type: Spontaneous
  Country: US (occurrence: None)
  Receive Date: 20141222
  Receipt Date: 20141222
  Transmission Date: 20150529
  Serious: No
  Sender: FDA-Public Use
  Company Number: None

PATIENT
  Sex: Male

DRUGS (10)
  1. TRAVATAN [Concomitant]
     Active Substance: TRAVOPROST
  2. FLOMAX [Concomitant]
     Active Substance: TAMSULOSIN HYDROCHLORIDE
  3. FERROUS SULFATE [Concomitant]
     Active Substance: FERROUS SULFATE\FERROUS SULFATE, DRIED
  4. CRESTOR [Concomitant]
     Active Substance: ROSUVASTATIN CALCIUM
  5. ZYTIGA [Concomitant]
     Active Substance: ABIRATERONE ACETATE
  6. LISINOPRIL. [Concomitant]
     Active Substance: LISINOPRIL
  7. ELIGARD [Concomitant]
     Active Substance: LEUPROLIDE ACETATE
  8. XTANDI [Suspect]
     Active Substance: ENZALUTAMIDE
     Indication: PROSTATE CANCER
     Route: 048
     Dates: start: 20140930
  9. PREDNISONE. [Concomitant]
     Active Substance: PREDNISONE
  10. ACYCLOVIR. [Concomitant]
     Active Substance: ACYCLOVIR

REACTIONS (3)
  - Decreased appetite [None]
  - Depression [None]
  - Diarrhoea [None]
